FAERS Safety Report 25981231 (Version 1)
Quarter: 2025Q4

REPORT INFORMATION
  Report Type: Spontaneous
  Country: CN (occurrence: CN)
  Receive Date: 20251030
  Receipt Date: 20251030
  Transmission Date: 20260118
  Serious: Yes (Other)
  Sender: MERCK SHARP & DOHME LLC
  Company Number: CN-009507513-2344470

PATIENT
  Age: 83 Year
  Sex: Male
  Weight: 65 kg

DRUGS (3)
  1. KEYTRUDA [Suspect]
     Active Substance: PEMBROLIZUMAB
     Indication: Lung neoplasm malignant
     Route: 041
     Dates: start: 20250815, end: 20250815
  2. CISPLATIN [Suspect]
     Active Substance: CISPLATIN
     Indication: Lung neoplasm malignant
     Dosage: TIME INTERVAL: CYCLICAL: 30 MG ON DAY 1 AND DAY 4 EVERY THREE WEEKS (Q3W)
     Route: 034
     Dates: start: 20250815, end: 20250815
  3. CISPLATIN [Suspect]
     Active Substance: CISPLATIN
     Indication: Lung neoplasm malignant
     Dosage: TIME INTERVAL: CYCLICAL: 30 MG ON DAY 1 AND DAY 4 EVERY THREE WEEKS (Q3W)
     Route: 034
     Dates: start: 20250904, end: 20250904

REACTIONS (9)
  - Acute kidney injury [Recovering/Resolving]
  - Benign prostatic hyperplasia [Unknown]
  - Pneumonia [Recovering/Resolving]
  - Hyperuricaemia [Unknown]
  - Decreased appetite [Unknown]
  - Lung neoplasm malignant [Unknown]
  - Coronary artery disease [Unknown]
  - Chronic gastritis [Unknown]
  - Hypertension [Unknown]

NARRATIVE: CASE EVENT DATE: 20250101
